FAERS Safety Report 16397389 (Version 3)
Quarter: 2021Q3

REPORT INFORMATION
  Report Type: Other
  Country: PT (occurrence: PT)
  Receive Date: 20190606
  Receipt Date: 20210922
  Transmission Date: 20211014
  Serious: Yes (Hospitalization)
  Sender: FDA-Public Use
  Company Number: PT-ROCHE-2327320

PATIENT
  Age: 11 Month
  Sex: Female

DRUGS (4)
  1. AMOXICILLIN CLAVULANIC ACID [Suspect]
     Active Substance: AMOXICILLIN\CLAVULANIC ACID
     Indication: INFLUENZA
     Route: 065
  2. OSELTAMIVIR [Suspect]
     Active Substance: OSELTAMIVIR
     Indication: INFLUENZA
     Route: 065
  3. VANCOMYCIN [Suspect]
     Active Substance: VANCOMYCIN
     Indication: INFLUENZA
     Route: 065
  4. CEFTRIAXONE. [Suspect]
     Active Substance: CEFTRIAXONE
     Indication: INFLUENZA
     Route: 065

REACTIONS (7)
  - Respiratory distress [Unknown]
  - Condition aggravated [Recovered/Resolved]
  - Bronchopleural fistula [Recovering/Resolving]
  - Medication error [Unknown]
  - Off label use [Unknown]
  - Hypoxia [Unknown]
  - Empyema [Recovered/Resolved]
